FAERS Safety Report 6623702-5 (Version None)
Quarter: 2010Q1

REPORT INFORMATION
  Report Type: 
  Country: None (occurrence: None)
  Receive Date: 20100310
  Receipt Date: 20091113
  Transmission Date: 20100710
  Serious: No
  Sender: FDA-Public Use
  Company Number: US-BIOGENIDEC-2009BI036922

PATIENT
  Sex: Female

DRUGS (4)
  1. AVONEX [Suspect]
     Indication: MULTIPLE SCLEROSIS
     Route: 030
     Dates: start: 19960101, end: 20030101
  2. AVONEX [Suspect]
     Route: 030
     Dates: start: 20030101
  3. SYNTHROID [Concomitant]
     Indication: HYPOTHYROIDISM
     Route: 048
  4. MEDICATION (NOS) [Concomitant]
     Indication: LIP DRY

REACTIONS (13)
  - ALOPECIA [None]
  - ARTHRALGIA [None]
  - DRY THROAT [None]
  - FATIGUE [None]
  - FEELING HOT [None]
  - GENERAL SYMPTOM [None]
  - INFLUENZA LIKE ILLNESS [None]
  - LIP DRY [None]
  - MICTURITION URGENCY [None]
  - MOBILITY DECREASED [None]
  - MUSCLE SPASMS [None]
  - PAIN OF SKIN [None]
  - URINARY RETENTION [None]
